FAERS Safety Report 6274837-0 (Version None)
Quarter: 2009Q3

REPORT INFORMATION
  Report Type: 
  Country: None (occurrence: None)
  Receive Date: 20090721
  Receipt Date: 20090709
  Transmission Date: 20100115
  Serious: Yes (Hospitalization)
  Sender: FDA-Public Use
  Company Number: CH-JNJFOC-20090703965

PATIENT
  Age: 40 Year
  Sex: Female

DRUGS (3)
  1. CAELYX [Suspect]
     Dosage: CYCLE 3
     Route: 042
  2. CAELYX [Suspect]
     Dosage: CYCLE 2
     Route: 042
  3. CAELYX [Suspect]
     Indication: BREAST CANCER
     Dosage: CYCLE 1
     Route: 042

REACTIONS (1)
  - RASH [None]
